FAERS Safety Report 9379587 (Version 1)
Quarter: 2013Q3

REPORT INFORMATION
  Report Type: Spontaneous
  Country: BR (occurrence: BR)
  Receive Date: 20130702
  Receipt Date: 20130702
  Transmission Date: 20140515
  Serious: Yes (Hospitalization)
  Sender: FDA-Public Use
  Company Number: BR-ASTRAZENECA-2013SE48643

PATIENT
  Age: 753 Month
  Sex: Male
  Weight: 67.5 kg

DRUGS (3)
  1. CRESTOR [Suspect]
     Indication: BLOOD CHOLESTEROL INCREASED
     Route: 048
  2. COZAAR [Concomitant]
     Indication: HYPERTENSION
  3. ASA [Concomitant]

REACTIONS (1)
  - Coronary artery occlusion [Recovered/Resolved]
